FAERS Safety Report 6677422-1 (Version None)
Quarter: 2010Q2

REPORT INFORMATION
  Report Type: 
  Country: None (occurrence: None)
  Receive Date: 20100412
  Receipt Date: 20100202
  Transmission Date: 20101027
  Serious: No
  Sender: FDA-Public Use
  Company Number: IL-ALEXION-A201000133

PATIENT
  Sex: Male

DRUGS (6)
  1. SOLIRIS [Suspect]
     Indication: PAROXYSMAL NOCTURNAL HAEMOGLOBINURIA
     Dosage: 600 MG, UNK
     Route: 042
     Dates: start: 20100111
  2. FOLIC ACID [Concomitant]
  3. COUMADIN [Concomitant]
  4. MENCEVAX [Concomitant]
     Dosage: UNK
     Dates: start: 20091214, end: 20091214
  5. PREDNISOLONE [Suspect]
     Indication: DRY SKIN
  6. PREDNISOLONE [Suspect]
     Indication: PRURITUS

REACTIONS (3)
  - BONE PAIN [None]
  - CHILLS [None]
  - HEADACHE [None]
